FAERS Safety Report 18625563 (Version 1)
Quarter: 2020Q4

REPORT INFORMATION
  Report Type: Spontaneous
  Country: IE (occurrence: IE)
  Receive Date: 20201217
  Receipt Date: 20201217
  Transmission Date: 20210114
  Serious: No
  Sender: FDA-Public Use
  Company Number: IE-ROCHE-2734264

PATIENT
  Sex: Female

DRUGS (1)
  1. OCREVUS [Suspect]
     Active Substance: OCRELIZUMAB
     Indication: MULTIPLE SCLEROSIS
     Dosage: 6 MONTH DOSE
     Route: 065
     Dates: start: 20200929

REACTIONS (3)
  - Anxiety [Unknown]
  - Genital herpes [Unknown]
  - Herpes zoster [Recovered/Resolved]
